FAERS Safety Report 7528913-2 (Version None)
Quarter: 2011Q2

REPORT INFORMATION
  Report Type: 
  Country: None (occurrence: None)
  Receive Date: 20110607
  Receipt Date: 20110525
  Transmission Date: 20111010
  Serious: Yes (Hospitalization, Other)
  Sender: FDA-Public Use
  Company Number: PHFR2010GB05983

PATIENT
  Sex: Female

DRUGS (3)
  1. CLOZARIL [Suspect]
     Dosage: 250MG DAILY
  2. CLOZARIL [Suspect]
     Indication: SCHIZOPHRENIA, PARANOID TYPE
     Dosage: 200MG MANE, 300MG NOCTE
     Route: 048
  3. CLOZARIL [Suspect]
     Dosage: 550MG/DAY
     Route: 048

REACTIONS (5)
  - SINUS TACHYCARDIA [None]
  - NEUTROPHIL COUNT INCREASED [None]
  - URINARY TRACT INFECTION [None]
  - MENTAL IMPAIRMENT [None]
  - MALAISE [None]
